FAERS Safety Report 7710559-4 (Version None)
Quarter: 2011Q3

REPORT INFORMATION
  Report Type: 
  Country: None (occurrence: None)
  Receive Date: 20110825
  Receipt Date: 20110818
  Transmission Date: 20111222
  Serious: No
  Sender: FDA-Public Use
  Company Number: US-PFIZER INC-2007036463

PATIENT

DRUGS (1)
  1. NEURONTIN [Suspect]
     Indication: SLEEP DISORDER
     Dosage: UNK

REACTIONS (4)
  - AMNESIA [None]
  - BLOOD PRESSURE INCREASED [None]
  - LIVER DISORDER [None]
  - DEPRESSION [None]
